FAERS Safety Report 16842509 (Version 1)
Quarter: 2019Q3

REPORT INFORMATION
  Report Type: Spontaneous
  Country: US (occurrence: US)
  Receive Date: 20190924
  Receipt Date: 20190924
  Transmission Date: 20191005
  Serious: Yes (Death, Other)
  Sender: FDA-Public Use
  Company Number: US-ROCHE-2413214

PATIENT
  Age: 5 Year
  Sex: Female
  Weight: 17 kg

DRUGS (10)
  1. COTRIMOXAZOLE [Concomitant]
     Active Substance: SULFAMETHOXAZOLE\TRIMETHOPRIM
     Indication: ANTIFUNGAL PROPHYLAXIS
  2. FOSCARNET [Concomitant]
     Active Substance: FOSCARNET
  3. TACROLIMUS. [Suspect]
     Active Substance: TACROLIMUS
     Indication: IMMUNOSUPPRESSION
     Route: 065
  4. PREDNISONE. [Suspect]
     Active Substance: PREDNISONE
     Indication: IMMUNOSUPPRESSION
     Dosage: DOSE TAPERED AS 1 MG/KG/DAY,  0.7 MG/KG/DAY,  0.5 MG/KG/DAY,  0.1 MG/KG/DAY
     Route: 065
  5. GANCICLOVIR. [Concomitant]
     Active Substance: GANCICLOVIR
     Dosage: FOR 1 WEEK
     Route: 042
  6. DACLIZUMAB [Suspect]
     Active Substance: DACLIZUMAB
     Indication: IMMUNOSUPPRESSION
     Route: 065
  7. METHYLPREDNISOLONE. [Suspect]
     Active Substance: METHYLPREDNISOLONE
     Indication: IMMUNOSUPPRESSION
     Route: 065
  8. GANCICLOVIR. [Concomitant]
     Active Substance: GANCICLOVIR
     Dosage: THROUGH 4 MONTHS AFTER TRANSPLANTATION
     Route: 048
  9. AMPHOTERICIN B. [Concomitant]
     Active Substance: AMPHOTERICIN B
  10. MYCOPHENOLATE MOFETIL. [Suspect]
     Active Substance: MYCOPHENOLATE MOFETIL
     Indication: IMMUNOSUPPRESSION
     Route: 048

REACTIONS (6)
  - Neutropenia [Unknown]
  - Cytomegalovirus infection [Fatal]
  - Pneumonia [Unknown]
  - Respiratory failure [Fatal]
  - Multiple organ dysfunction syndrome [Unknown]
  - Graft loss [Unknown]
